FAERS Safety Report 16325810 (Version 1)
Quarter: 2019Q2

REPORT INFORMATION
  Report Type: Spontaneous
  Country: US (occurrence: US)
  Receive Date: 20190516
  Receipt Date: 20190516
  Transmission Date: 20190711
  Serious: No
  Sender: FDA-Public Use
  Company Number: None

PATIENT
  Age: 48 Year
  Sex: Female
  Weight: 63 kg

DRUGS (1)
  1. NEUTROGENA SENSITIVE SKIN SUNSCREEN BROAD SPECTRUM SPF60 PLUS [Suspect]
     Active Substance: TITANIUM DIOXIDE\ZINC OXIDE
     Indication: PROPHYLAXIS AGAINST SOLAR RADIATION
     Dosage: ?          OTHER FREQUENCY:EVERY 2 HOURS;?
     Route: 061
     Dates: start: 20190514, end: 20190515

REACTIONS (2)
  - Application site rash [None]
  - Application site hypersensitivity [None]
